FAERS Safety Report 22356097 (Version 1)
Quarter: 2023Q2

REPORT INFORMATION
  Report Type: Spontaneous
  Country: US (occurrence: None)
  Receive Date: 20230523
  Receipt Date: 20230523
  Transmission Date: 20230721
  Serious: No
  Sender: FDA-Public Use
  Company Number: None

PATIENT
  Sex: Male

DRUGS (1)
  1. GENOTROPIN [Suspect]
     Active Substance: SOMATROPIN
     Indication: Hypopituitarism
     Dosage: 0.4MG DAILY SUB-Q?
     Route: 058
     Dates: start: 202305

REACTIONS (5)
  - Device issue [None]
  - Injection site swelling [None]
  - Injection related reaction [None]
  - Injection site erythema [None]
  - Device defective [None]
